FAERS Safety Report 11428081 (Version 1)
Quarter: 2015Q3

REPORT INFORMATION
  Report Type: Spontaneous
  Country: US (occurrence: US)
  Receive Date: 20150828
  Receipt Date: 20150828
  Transmission Date: 20151125
  Serious: No
  Sender: FDA-Public Use
  Company Number: US-ROCHE-1258457

PATIENT
  Age: 30 Year
  Sex: Male
  Weight: 102.15 kg

DRUGS (6)
  1. PEGASYS [Suspect]
     Active Substance: PEGINTERFERON ALFA-2A
     Route: 058
     Dates: start: 20130716
  2. SUBOXONE [Concomitant]
     Active Substance: BUPRENORPHINE HYDROCHLORIDE\NALOXONE HYDROCHLORIDE
     Indication: DRUG DEPENDENCE
     Route: 048
  3. BOCEPREVIR [Concomitant]
     Active Substance: BOCEPREVIR
     Route: 065
     Dates: start: 20130816
  4. RIBAVIRIN. [Suspect]
     Active Substance: RIBAVIRIN
     Dosage: DIVEDED DOSE 600/600
     Route: 048
     Dates: start: 20130716
  5. PEGASYS [Suspect]
     Active Substance: PEGINTERFERON ALFA-2A
     Indication: HEPATITIS C
     Route: 058
     Dates: start: 20130710
  6. RIBAVIRIN. [Suspect]
     Active Substance: RIBAVIRIN
     Indication: HEPATITIS C
     Dosage: QD
     Route: 048
     Dates: start: 20130710

REACTIONS (23)
  - Nausea [Recovered/Resolved]
  - Dry skin [Unknown]
  - Feeling hot [Unknown]
  - Dysgeusia [Unknown]
  - Dry mouth [Unknown]
  - Weight decreased [Not Recovered/Not Resolved]
  - Constipation [Unknown]
  - Fatigue [Unknown]
  - Injection site rash [Unknown]
  - Sinusitis [Unknown]
  - Red blood cell count decreased [Not Recovered/Not Resolved]
  - Headache [Unknown]
  - Gastrooesophageal reflux disease [Unknown]
  - Peripheral swelling [Unknown]
  - Haemoglobin decreased [Unknown]
  - Dehydration [Unknown]
  - Rash [Unknown]
  - Injection site erythema [Unknown]
  - Gastroenteritis viral [Unknown]
  - Diarrhoea [Recovered/Resolved]
  - Vomiting [Recovered/Resolved]
  - Asthenia [Unknown]
  - Pyrexia [Unknown]

NARRATIVE: CASE EVENT DATE: 20130826
